FAERS Safety Report 11291017 (Version 1)
Quarter: 2015Q3

REPORT INFORMATION
  Report Type: Spontaneous
  Country: US (occurrence: US)
  Receive Date: 20150722
  Receipt Date: 20150722
  Transmission Date: 20151125
  Serious: No
  Sender: FDA-Public Use
  Company Number: US-UNITED THERAPEUTICS-UNT-2015-005949

PATIENT
  Age: 46 Year
  Sex: Female
  Weight: 126.8 kg

DRUGS (4)
  1. REMODULIN [Suspect]
     Active Substance: TREPROSTINIL
     Dosage: 0.01375 ?G/KG/MIN, CONTINUING
     Route: 058
     Dates: start: 20150413
  2. OPSUMIT [Concomitant]
     Active Substance: MACITENTAN
     Indication: PRODUCT USED FOR UNKNOWN INDICATION
  3. REMODULIN [Suspect]
     Active Substance: TREPROSTINIL
     Indication: PULMONARY ARTERIAL HYPERTENSION
     Dosage: 0.0075 ?G/KG/MIN, CONTINUING
     Route: 041
     Dates: start: 20150317
  4. REMODULIN [Suspect]
     Active Substance: TREPROSTINIL
     Dosage: 0.01375 ?G/KG/MIN, CONTINUING
     Route: 041
     Dates: start: 20150521

REACTIONS (5)
  - Diarrhoea [Unknown]
  - Nausea [Recovering/Resolving]
  - Incorrect dose administered [Unknown]
  - Product preparation error [Unknown]
  - Vomiting [Recovering/Resolving]

NARRATIVE: CASE EVENT DATE: 20150515
